FAERS Safety Report 4695941-4 (Version None)
Quarter: 2005Q2

REPORT INFORMATION
  Report Type: 
  Country: None (occurrence: None)
  Receive Date: 20050621
  Receipt Date: 20050609
  Transmission Date: 20051028
  Serious: Yes (Hospitalization, Other)
  Sender: FDA-Public Use
  Company Number: FR-BRISTOL-MYERS SQUIBB COMPANY-12999975

PATIENT
  Age: 52 Year
  Sex: Male
  Weight: 69 kg

DRUGS (20)
  1. VIDEX EC [Suspect]
     Indication: HIV INFECTION
     Route: 048
     Dates: start: 20050523, end: 20050527
  2. ZERIT [Suspect]
     Indication: HIV INFECTION
     Dates: start: 20050323, end: 20050523
  3. AMIKACIN [Suspect]
     Indication: KERATITIS
     Route: 042
     Dates: start: 20050506
  4. EPIVIR [Suspect]
     Indication: HIV INFECTION
     Route: 048
     Dates: start: 20050323, end: 20050527
  5. KALETRA [Suspect]
     Indication: HIV INFECTION
     Route: 048
     Dates: start: 20050523, end: 20050527
  6. AMLODIPINE BESYLATE [Concomitant]
  7. DETENSIEL [Concomitant]
  8. COAPROVEL [Concomitant]
  9. LASILIX [Concomitant]
  10. KAYEXALATE [Concomitant]
  11. OMEPRAZOLE [Concomitant]
  12. RIMIFON [Concomitant]
     Indication: TUBERCULOSIS
     Dates: start: 20050216
  13. RIFADIN [Concomitant]
     Indication: TUBERCULOSIS
     Dates: start: 20050216, end: 20050412
  14. DEXAMBUTOL [Concomitant]
     Indication: TUBERCULOSIS
     Dates: start: 20050216, end: 20050412
  15. PYRAZINAMIDE [Concomitant]
     Indication: TUBERCULOSIS
     Dates: start: 20050216, end: 20050412
  16. ZYLORIC [Concomitant]
     Indication: TUBERCULOSIS
     Dates: start: 20050314
  17. SOPROL [Concomitant]
     Indication: TUBERCULOSIS
     Dates: start: 20050314
  18. NORVIR [Concomitant]
     Indication: HIV INFECTION
     Dates: start: 20050323, end: 20050523
  19. INVIRASE [Concomitant]
     Indication: HIV INFECTION
     Dates: start: 20050323, end: 20050523
  20. CIFLOX [Concomitant]
     Indication: TUBERCULOSIS
     Dates: start: 20050412

REACTIONS (5)
  - AGITATION [None]
  - CONVULSION [None]
  - KERATITIS [None]
  - RENAL FAILURE ACUTE [None]
  - STEVENS-JOHNSON SYNDROME [None]
